FAERS Safety Report 7086550-0 (Version None)
Quarter: 2010Q4

REPORT INFORMATION
  Report Type: 
  Country: None (occurrence: None)
  Receive Date: 20101105
  Receipt Date: 20101025
  Transmission Date: 20110411
  Serious: Yes (Life-Threatening, Other)
  Sender: FDA-Public Use
  Company Number: JP-BAYER-201014724BYL

PATIENT
  Age: 62 Year
  Sex: Male
  Weight: 81 kg

DRUGS (10)
  1. NEXAVAR [Suspect]
     Indication: HEPATIC NEOPLASM MALIGNANT
     Dosage: UNIT DOSE: 200 MG
     Route: 048
     Dates: start: 20100824, end: 20100908
  2. NEXAVAR [Suspect]
     Dosage: UNIT DOSE: 200 MG
     Route: 048
     Dates: start: 20101005
  3. PARIET [Concomitant]
     Indication: OESOPHAGITIS
     Dosage: UNIT DOSE: 20 MG
     Route: 048
  4. LASIX [Concomitant]
     Indication: OEDEMA
     Dosage: UNIT DOSE: 20 MG
     Route: 048
  5. GASTROM [Concomitant]
     Indication: GASTRITIS
     Dosage: UNIT DOSE: 66.7 %
     Route: 048
  6. MUCOSTA [Concomitant]
     Indication: GASTRITIS
     Dosage: UNIT DOSE: 100 MG
     Route: 048
  7. ALDACTONE [Concomitant]
     Indication: OEDEMA
     Dosage: UNIT DOSE: 25 MG
     Route: 048
  8. FLUOROURACIL [Concomitant]
     Route: 013
     Dates: start: 20100726, end: 20100730
  9. CISPLATIN [Concomitant]
     Route: 013
     Dates: start: 20100726
  10. CISPLATIN [Concomitant]
     Route: 013
     Dates: start: 20100727, end: 20100730

REACTIONS (1)
  - COMA HEPATIC [None]
